FAERS Safety Report 7267685-6 (Version None)
Quarter: 2011Q1

REPORT INFORMATION
  Report Type: 
  Country: None (occurrence: None)
  Receive Date: 20110201
  Receipt Date: 20110120
  Transmission Date: 20110831
  Serious: Yes (Life-Threatening, Hospitalization)
  Sender: FDA-Public Use
  Company Number: GB-ROCHE-748776

PATIENT
  Sex: Male
  Weight: 85 kg

DRUGS (13)
  1. ASPIRIN [Concomitant]
     Indication: UNEVALUABLE EVENT
     Route: 048
  2. ONDANSETRON [Concomitant]
     Indication: NAUSEA
     Dosage: TWICE A DAY AS NECESSARY
  3. SANDO K [Concomitant]
  4. OMEPRAZOLE [Concomitant]
     Indication: GASTRITIS
     Route: 048
  5. AVASTIN [Suspect]
     Dosage: 640 MG 7.5 MG PER KG
     Route: 042
     Dates: start: 20101103, end: 20101210
  6. ATENOLOL [Concomitant]
     Indication: UNEVALUABLE EVENT
     Route: 048
  7. SIMVASTATIN [Concomitant]
  8. CANDESARTAN [Concomitant]
     Indication: UNEVALUABLE EVENT
     Route: 048
  9. DOMPERIDONE [Concomitant]
     Indication: NAUSEA
  10. CAPECITABINE [Suspect]
     Route: 048
     Dates: start: 20101103, end: 20101210
  11. ADCAL D3 [Concomitant]
     Route: 048
  12. LOPERAMIDE [Concomitant]
     Indication: DIARRHOEA
  13. ONDANSETRON [Concomitant]

REACTIONS (2)
  - INTESTINAL ISCHAEMIA [None]
  - DIARRHOEA [None]
